FAERS Safety Report 5471303-7 (Version None)
Quarter: 2007Q3

REPORT INFORMATION
  Report Type: 
  Country: None (occurrence: None)
  Receive Date: 20070928
  Receipt Date: 20070917
  Transmission Date: 20080115
  Serious: Yes (Hospitalization, Other)
  Sender: FDA-Public Use
  Company Number: US-PFIZER INC-2007069786

PATIENT
  Sex: Female
  Weight: 90.7 kg

DRUGS (5)
  1. CHANTIX [Suspect]
     Indication: SMOKING CESSATION THERAPY
     Route: 048
     Dates: start: 20070816, end: 20070819
  2. ZOLOFT [Concomitant]
  3. PREVACID [Concomitant]
  4. GLUCOPHAGE [Concomitant]
  5. CRESTOR [Concomitant]

REACTIONS (7)
  - ANXIETY [None]
  - CHEST PAIN [None]
  - DIPLOPIA [None]
  - HYPERTENSION [None]
  - INSOMNIA [None]
  - MALAISE [None]
  - MIGRAINE [None]
